FAERS Safety Report 18579846 (Version 3)
Quarter: 2020Q4

REPORT INFORMATION
  Report Type: Spontaneous
  Country: JP (occurrence: JP)
  Receive Date: 20201204
  Receipt Date: 20201230
  Transmission Date: 20210114
  Serious: Yes (Other)
  Sender: FDA-Public Use
  Company Number: JP-009507513-2011JPN012563

PATIENT
  Age: 74 Year
  Sex: Female

DRUGS (2)
  1. FIDAXOMICIN [Suspect]
     Active Substance: FIDAXOMICIN
     Indication: PSEUDOMEMBRANOUS COLITIS
     Dosage: 400 MG/DAY, UNKNOWN FREQ.
     Route: 045
     Dates: start: 20201114, end: 20201118
  2. FIDAXOMICIN [Suspect]
     Active Substance: FIDAXOMICIN
     Dosage: 400 MG/DAY, UNKNOWN FREQ.
     Route: 048
     Dates: start: 20201119, end: 20201127

REACTIONS (4)
  - Off label use [Unknown]
  - Product use issue [Unknown]
  - Product use issue [Unknown]
  - Delirium [Recovered/Resolved]

NARRATIVE: CASE EVENT DATE: 20201114
